FAERS Safety Report 4294408-5 (Version None)
Quarter: 2004Q1

REPORT INFORMATION
  Report Type: 
  Country: None (occurrence: None)
  Receive Date: 20040211
  Receipt Date: 20040123
  Transmission Date: 20041129
  Serious: Yes (Hospitalization)
  Sender: FDA-Public Use
  Company Number: MEDI-0001386

PATIENT
  Age: 70 Year
  Sex: Male
  Weight: 70.3075 kg

DRUGS (1)
  1. ETHYOL [Suspect]
     Indication: RADIOTHERAPY
     Dosage: SUBCUTANEOUS
     Route: 058
     Dates: end: 20040120

REACTIONS (2)
  - DEHYDRATION [None]
  - MUCOSAL INFLAMMATION [None]
